FAERS Safety Report 16283705 (Version 1)
Quarter: 2019Q2

REPORT INFORMATION
  Report Type: Spontaneous
  Country: CZ (occurrence: CZ)
  Receive Date: 20190507
  Receipt Date: 20190507
  Transmission Date: 20190711
  Serious: Yes (Other)
  Sender: FDA-Public Use
  Company Number: CZ-GILEAD-2018-0368073

PATIENT

DRUGS (1)
  1. ZYDELIG [Suspect]
     Active Substance: IDELALISIB
     Indication: BURKITT^S LYMPHOMA
     Route: 065

REACTIONS (2)
  - Neoplasm progression [Recovered/Resolved]
  - Off label use [Unknown]
